FAERS Safety Report 19251326 (Version 1)
Quarter: 2021Q2

REPORT INFORMATION
  Report Type: Spontaneous
  Country: CA (occurrence: CA)
  Receive Date: 20210512
  Receipt Date: 20210512
  Transmission Date: 20210717
  Serious: Yes (Other)
  Sender: FDA-Public Use
  Company Number: CA-SUNOVION-2021SUN001696

PATIENT
  Age: 71 Year
  Sex: Female
  Weight: 59 kg

DRUGS (7)
  1. KYNMOBI [Suspect]
     Active Substance: APOMORPHINE HYDROCHLORIDE
     Indication: PARKINSON^S DISEASE
     Dosage: 30 MG, AS NECESSARY
  2. KYNMOBI [Suspect]
     Active Substance: APOMORPHINE HYDROCHLORIDE
     Dosage: UNK
     Route: 060
  3. SINEMET [Concomitant]
     Active Substance: CARBIDOPA\LEVODOPA
     Dosage: UNK
  4. ROTIGOTINE [Concomitant]
     Active Substance: ROTIGOTINE
     Dosage: UNK
  5. KYNMOBI [Suspect]
     Active Substance: APOMORPHINE HYDROCHLORIDE
     Dosage: 30 MG
     Route: 060
  6. AMANTADINE. [Concomitant]
     Active Substance: AMANTADINE HYDROCHLORIDE
  7. AZILECT [Concomitant]
     Active Substance: RASAGILINE MESYLATE

REACTIONS (3)
  - Drug ineffective [Unknown]
  - Therapy non-responder [Unknown]
  - Gene mutation [Unknown]

NARRATIVE: CASE EVENT DATE: 20210503
